FAERS Safety Report 23258398 (Version 2)
Quarter: 2023Q4

REPORT INFORMATION
  Report Type: Spontaneous
  Country: US (occurrence: US)
  Receive Date: 20231204
  Receipt Date: 20231213
  Transmission Date: 20240109
  Serious: Yes (Other)
  Sender: FDA-Public Use
  Company Number: US-ASTELLAS-2023US035750

PATIENT
  Age: 86 Year
  Sex: Female

DRUGS (2)
  1. MYRBETRIQ [Suspect]
     Active Substance: MIRABEGRON
     Indication: Pollakiuria
     Route: 048
     Dates: start: 202306
  2. MYRBETRIQ [Suspect]
     Active Substance: MIRABEGRON
     Indication: Urinary incontinence
     Dosage: 25 MG, ONCE DAILY (IN THE AFTERNOON)
     Route: 048
     Dates: start: 202310, end: 20231204

REACTIONS (5)
  - Neuropathy peripheral [Unknown]
  - Pruritus [Unknown]
  - Dry skin [Unknown]
  - Chronic obstructive pulmonary disease [Unknown]
  - Product dose omission in error [Recovered/Resolved]

NARRATIVE: CASE EVENT DATE: 20231001
